FAERS Safety Report 9288790 (Version 1)
Quarter: 2013Q2

REPORT INFORMATION
  Report Type: Spontaneous
  Country: US (occurrence: US)
  Receive Date: 20130508
  Receipt Date: 20130508
  Transmission Date: 20140414
  Serious: Yes (Other)
  Sender: FDA-Public Use
  Company Number: US-RB-044529-12

PATIENT
  Age: 21 Year
  Sex: Female

DRUGS (1)
  1. BUPRENORPHINE GENERIC [Suspect]
     Indication: DRUG DEPENDENCE
     Dosage: DOSING DETAILS UNKNOWN
     Route: 065
     Dates: start: 201111

REACTIONS (2)
  - Polyhydramnios [Recovered/Resolved]
  - Exposure during pregnancy [Recovered/Resolved]
